FAERS Safety Report 7359111-3 (Version None)
Quarter: 2011Q1

REPORT INFORMATION
  Report Type: 
  Country: None (occurrence: None)
  Receive Date: 20110307
  Receipt Date: 20090818
  Transmission Date: 20110831
  Serious: Yes (Disabling)
  Sender: FDA-Public Use
  Company Number: UK-2009-00264

PATIENT
  Age: 65 Year
  Sex: Male
  Weight: 92 kg

DRUGS (14)
  1. BENDROFLUAZIDE [Concomitant]
  2. DIPYRIDAMOLE [Concomitant]
  3. PARAFFIN LIQUID/PARAFFIN SOFT WHITE (LACRI-LUEE) [Concomitant]
  4. ENALAPRIL MALEATE [Concomitant]
  5. POLYVINYL ALCOHOL [Concomitant]
  6. PARACETAMOL [Concomitant]
  7. SITAGLIPTIN [Suspect]
     Indication: DIABETES MELLITUS
     Dosage: 100 MG (100 MG), ORAL
     Route: 048
     Dates: start: 20080812, end: 20090518
  8. LANTUS [Concomitant]
  9. METFORMIN (METFORMIN HYDROCHLORIDE) [Concomitant]
  10. PARVASTATIN [Concomitant]
  11. BUPRENORPHINE [Concomitant]
  12. OXYTETRACYCLINE [Concomitant]
  13. SIMVASTATIN [Suspect]
     Indication: PRODUCT USED FOR UNKNOWN INDICATION
  14. ASPIRIN [Concomitant]

REACTIONS (12)
  - LACRIMATION DECREASED [None]
  - MALAISE [None]
  - MEIBOMIAN GLAND DYSFUNCTION [None]
  - NAUSEA [None]
  - RETINAL EXUDATES [None]
  - OCULAR DISCOMFORT [None]
  - DIABETIC RETINOPATHY [None]
  - INTRAOCULAR PRESSURE DECREASED [None]
  - MYALGIA [None]
  - RETINAL HAEMORRHAGE [None]
  - ARTHRALGIA [None]
  - VISION BLURRED [None]
